FAERS Safety Report 12463790 (Version 2)
Quarter: 2016Q3

REPORT INFORMATION
  Report Type: Spontaneous
  Country: US (occurrence: US)
  Receive Date: 20160614
  Receipt Date: 20160708
  Transmission Date: 20161109
  Serious: Yes (Hospitalization)
  Sender: FDA-Public Use
  Company Number: US-ASTRAZENECA-2008BM04407

PATIENT
  Age: 661 Month
  Sex: Female
  Weight: 76.7 kg

DRUGS (15)
  1. BYETTA [Suspect]
     Active Substance: EXENATIDE
     Indication: TYPE 2 DIABETES MELLITUS
     Dosage: 0.25 MG/ML, 10 MICROGRAMS TWO TIMES A DAY
     Route: 058
     Dates: start: 20060113
  2. ASPIRIN. [Concomitant]
     Active Substance: ASPIRIN
     Indication: CEREBROVASCULAR ACCIDENT
     Route: 048
  3. BYETTA [Suspect]
     Active Substance: EXENATIDE
     Indication: TYPE 2 DIABETES MELLITUS
     Dosage: 0.25 MG/ML, 5 MICROGRAMS TWO TIMES A DAY
     Route: 058
     Dates: start: 20051213, end: 20060112
  4. NORTRIPTYLINE [Concomitant]
     Active Substance: NORTRIPTYLINE
     Indication: DEPRESSION
     Dosage: 25.0MG UNKNOWN
     Route: 048
     Dates: start: 1987
  5. BYDUREON [Suspect]
     Active Substance: EXENATIDE
     Indication: TYPE 2 DIABETES MELLITUS
     Dosage: SDT, 2 MILLIGRAMS PER WEEK
     Route: 058
     Dates: start: 2014, end: 201603
  6. AVANDIA [Concomitant]
     Active Substance: ROSIGLITAZONE MALEATE
     Indication: TYPE 2 DIABETES MELLITUS
     Dosage: EVERY DAY
  7. GLIMIPIRIDE [Concomitant]
     Active Substance: GLIMEPIRIDE
     Indication: DIABETES MELLITUS
     Route: 048
  8. GABAPENTIN. [Concomitant]
     Active Substance: GABAPENTIN
     Indication: NEUROPATHY PERIPHERAL
     Dosage: 300 MILLIGRAMS
     Route: 048
     Dates: start: 2002
  9. GABAPENTIN. [Concomitant]
     Active Substance: GABAPENTIN
     Indication: NEUROPATHY PERIPHERAL
     Dosage: TWO TIMES A DAY
     Route: 048
     Dates: start: 2002
  10. METFORMIN [Concomitant]
     Active Substance: METFORMIN HYDROCHLORIDE
     Indication: DIABETES MELLITUS
     Route: 048
  11. ATORVASTATIN [Concomitant]
     Active Substance: ATORVASTATIN
     Indication: BLOOD CHOLESTEROL INCREASED
     Route: 048
     Dates: start: 201601
  12. CARVEDILOL. [Concomitant]
     Active Substance: CARVEDILOL
     Indication: HYPERTENSION
     Route: 048
  13. BYETTA [Suspect]
     Active Substance: EXENATIDE
     Indication: TYPE 2 DIABETES MELLITUS
     Dosage: 10
     Route: 058
     Dates: start: 2005, end: 2014
  14. BYDUREON [Suspect]
     Active Substance: EXENATIDE
     Indication: TYPE 2 DIABETES MELLITUS
     Dosage: PEN, 2 MILLIGRAMS PER WEEK
     Route: 058
     Dates: start: 201603
  15. INVOKANA [Concomitant]
     Active Substance: CANAGLIFLOZIN
     Indication: DIABETES MELLITUS
     Route: 048

REACTIONS (15)
  - Incorrect dose administered [Not Recovered/Not Resolved]
  - Injection site extravasation [Unknown]
  - Injection site urticaria [Recovered/Resolved]
  - Abdominal distension [Recovering/Resolving]
  - Injury associated with device [Not Recovered/Not Resolved]
  - Injection site mass [Not Recovered/Not Resolved]
  - Cerebrovascular accident [Unknown]
  - Tinnitus [Recovering/Resolving]
  - Injection site bruising [Unknown]
  - Injection site haemorrhage [Not Recovered/Not Resolved]
  - Blood glucose decreased [Unknown]
  - Extra dose administered [Recovered/Resolved]
  - Device malfunction [Unknown]
  - Injection site pain [Unknown]
  - Weight decreased [Unknown]

NARRATIVE: CASE EVENT DATE: 200601
